FAERS Safety Report 6171211-2 (Version None)
Quarter: 2009Q2

REPORT INFORMATION
  Report Type: 
  Country: None (occurrence: None)
  Receive Date: 20090429
  Receipt Date: 20090417
  Transmission Date: 20091009
  Serious: Yes (Death, Hospitalization, Other)
  Sender: FDA-Public Use
  Company Number: GB-CELGENEUS-167-20484-09030822

PATIENT
  Sex: Male
  Weight: 63 kg

DRUGS (2)
  1. INNOHEP [Suspect]
     Dosage: 0.6 ML DAILY (12250 IU DAILY)
     Route: 058
     Dates: start: 20050629
  2. INNOHEP [Suspect]
     Dosage: 0.7 ML DAILY (14000 IU DAILY)
     Route: 058
     Dates: start: 20050702

REACTIONS (6)
  - ANAEMIA [None]
  - INJECTION SITE ABSCESS [None]
  - MEDICATION ERROR [None]
  - MULTI-ORGAN FAILURE [None]
  - RENAL FAILURE [None]
  - SEPSIS [None]
